FAERS Safety Report 5834775-1 (Version None)
Quarter: 2008Q3

REPORT INFORMATION
  Report Type: 
  Country: None (occurrence: None)
  Receive Date: 20080804
  Receipt Date: 20080725
  Transmission Date: 20090109
  Serious: Yes (Death, Other)
  Sender: FDA-Public Use
  Company Number: 163-21880-08071538

PATIENT
  Age: 78 Year
  Sex: Female

DRUGS (10)
  1. REVLIMID [Suspect]
     Indication: MULTIPLE MYELOMA
     Dosage: 25 MG, 1 IN 1 D, ORAL
     Route: 048
     Dates: start: 20080715
  2. DECADRON [Concomitant]
  3. ARICEPT [Concomitant]
  4. LASIX [Concomitant]
  5. MULTIVITAMIN [Concomitant]
  6. SIMVASTATIN [Concomitant]
  7. POTASSIUM (POTASSIUM) [Concomitant]
  8. DURAGESIC-100 [Concomitant]
  9. OMEPRAZOLE [Concomitant]
  10. LORATADINE [Concomitant]

REACTIONS (3)
  - CEREBROVASCULAR ACCIDENT [None]
  - RENAL ARTERY STENT PLACEMENT [None]
  - THROMBOSIS [None]
